FAERS Safety Report 8245102 (Version 2)
Quarter: 2012Q4

REPORT INFORMATION
  Report Type: 
  Country: US (occurrence: US)
  Receive Date: 20111115
  Receipt Date: 20121228
  Transmission Date: 20130627
  Serious: Yes (Death, Other)
  Sender: FDA-Public Use
  Company Number: US-CELGENEUS-163-50794-11110476

PATIENT

DRUGS (4)
  1. VIDAZA [Suspect]
     Indication: ACUTE MYELOID LEUKEMIA
     Dosage: 75 milligram/sq. meter
  2. VIDAZA [Suspect]
     Dosage: dose reduction
  3. REVLIMID [Suspect]
     Indication: ACUTE MYELOID LEUKEMIA
     Dosage: escalating doses 5, 10, 25, and 50mg
     Route: 048
  4. REVLIMID [Suspect]
     Dosage: dose reductions
     Route: 048

REACTIONS (75)
  - Infection [Fatal]
  - Acute myeloid leukaemia [Fatal]
  - Atrioventricular block [Unknown]
  - Aphasia [Unknown]
  - Left ventricular dysfunction [Unknown]
  - Syncope [Unknown]
  - Pleural effusion [Unknown]
  - Depression [Unknown]
  - Arthritis [Unknown]
  - Thrombosis in device [Unknown]
  - Hyponatraemia [Unknown]
  - Deep vein thrombosis [Unknown]
  - Pulmonary embolism [Unknown]
  - Pneumonitis [Unknown]
  - Systemic inflammatory response syndrome [Unknown]
  - Haemoptysis [Unknown]
  - Atrial fibrillation [Unknown]
  - Blood creatinine abnormal [Unknown]
  - Renal failure [Unknown]
  - Thrombocytopenia [Unknown]
  - Neutropenia [Unknown]
  - Bone marrow failure [Unknown]
  - Febrile neutropenia [Unknown]
  - Pneumonia [Unknown]
  - Cellulitis [Unknown]
  - Urinary tract infection [Unknown]
  - Dizziness [Unknown]
  - Hypotension [Unknown]
  - Fatigue [Unknown]
  - Insomnia [Unknown]
  - Rash [Unknown]
  - Vitreous haemorrhage [Unknown]
  - Fungal infection [Unknown]
  - Sinusitis [Unknown]
  - Dysarthria [Unknown]
  - Confusional state [Unknown]
  - Headache [Unknown]
  - Cough [Unknown]
  - Nausea [Unknown]
  - Vomiting [Unknown]
  - Diarrhoea [Unknown]
  - Dysphagia [Unknown]
  - Decreased appetite [Unknown]
  - Dry mouth [Unknown]
  - Haemorrhoids [Unknown]
  - Dysgeusia [Unknown]
  - Oesophagitis [Unknown]
  - Flatulence [Unknown]
  - Mucosal inflammation [Unknown]
  - Dyspnoea [Unknown]
  - Dysphonia [Unknown]
  - Constipation [Unknown]
  - Night sweats [Unknown]
  - Lymphadenitis [Unknown]
  - Back pain [Unknown]
  - Ear pain [Unknown]
  - Gingival pain [Unknown]
  - Pain in extremity [Unknown]
  - Oropharyngeal pain [Unknown]
  - Toothache [Unknown]
  - Arthralgia [Unknown]
  - Pain in extremity [Unknown]
  - Epistaxis [Unknown]
  - Haematoma [Unknown]
  - Gingival bleeding [Unknown]
  - Urinary retention [Unknown]
  - Pollakiuria [Unknown]
  - Injection site reaction [Unknown]
  - Flushing [Unknown]
  - Pruritus [Unknown]
  - Pigmentation disorder [Unknown]
  - Oedema peripheral [Unknown]
  - Rhinitis [Unknown]
  - External ear inflammation [Unknown]
  - Pyrexia [Unknown]
